FAERS Safety Report 8401549-7 (Version None)
Quarter: 2012Q2

REPORT INFORMATION
  Report Type: 
  Country: None (occurrence: None)
  Receive Date: 20120601
  Receipt Date: 20120524
  Transmission Date: 20120825
  Serious: Yes (Other)
  Sender: FDA-Public Use
  Company Number: PHHY2012US045759

PATIENT
  Age: 32 Year
  Sex: Female

DRUGS (2)
  1. HYDRALAZINE HCL [Suspect]
     Indication: HYPERTENSION
  2. LABETALOL HCL [Suspect]
     Indication: HYPERTENSION

REACTIONS (17)
  - HELLP SYNDROME [None]
  - LIVER FUNCTION TEST ABNORMAL [None]
  - ATROPHY [None]
  - ANAEMIA [None]
  - RENAL FAILURE ACUTE [None]
  - BLOOD LACTATE DEHYDROGENASE INCREASED [None]
  - ANURIA [None]
  - RED BLOOD CELL SCHISTOCYTES PRESENT [None]
  - THROMBOCYTOPENIA [None]
  - BLOOD CREATININE INCREASED [None]
  - GRAND MAL CONVULSION [None]
  - HYPERKALAEMIA [None]
  - RENAL NECROSIS [None]
  - KIDNEY FIBROSIS [None]
  - FOETAL DEATH [None]
  - MATERNAL EXPOSURE DURING PREGNANCY [None]
  - PLACENTAL DISORDER [None]
